FAERS Safety Report 6572720-4 (Version None)
Quarter: 2010Q1

REPORT INFORMATION
  Report Type: 
  Country: None (occurrence: None)
  Receive Date: 20100205
  Receipt Date: 20100128
  Transmission Date: 20100710
  Serious: Yes (Hospitalization)
  Sender: FDA-Public Use
  Company Number: GB-ABBOTT-10P-167-0623308-00

PATIENT
  Sex: Female
  Weight: 57 kg

DRUGS (2)
  1. HUMIRA [Suspect]
     Indication: RHEUMATOID ARTHRITIS
     Route: 058
     Dates: start: 20081006
  2. LEFLUNOMIDE [Concomitant]
     Indication: DRUG USE FOR UNKNOWN INDICATION

REACTIONS (8)
  - ABDOMINAL DISTENSION [None]
  - DISCOMFORT [None]
  - DYSPNOEA [None]
  - HYDRONEPHROSIS [None]
  - NON-HODGKIN'S LYMPHOMA [None]
  - OVARIAN MASS [None]
  - PLEURAL EFFUSION [None]
  - ULTRASOUND SCAN ABNORMAL [None]
